FAERS Safety Report 21462628 (Version 1)
Quarter: 2022Q4

REPORT INFORMATION
  Report Type: Spontaneous
  Country: DE (occurrence: DE)
  Receive Date: 20221017
  Receipt Date: 20221017
  Transmission Date: 20230113
  Serious: Yes (Other)
  Sender: FDA-Public Use
  Company Number: DE-BRISTOL-MYERS SQUIBB COMPANY-2022-121197

PATIENT
  Age: 80 Year

DRUGS (2)
  1. NIVOLUMAB [Suspect]
     Active Substance: NIVOLUMAB
     Indication: Pleural mesothelioma malignant
     Dosage: NIVOLUMAB 360MG Q22, IPILIMUMAB 1MG/KG BODY WEIGHT Q42
     Route: 065
     Dates: start: 202110
  2. IPILIMUMAB [Suspect]
     Active Substance: IPILIMUMAB
     Indication: Pleural mesothelioma malignant
     Dosage: NIVOLUMAB 360MG Q22, IPILIMUMAB 1MG/KG BODY WEIGHT Q42
     Route: 065
     Dates: start: 202110

REACTIONS (1)
  - Optic neuritis [Recovered/Resolved]
